FAERS Safety Report 9124795 (Version 1)
Quarter: 2013Q1

REPORT INFORMATION
  Report Type: Spontaneous
  Country: JP (occurrence: JP)
  Receive Date: 20130227
  Receipt Date: 20130227
  Transmission Date: 20140127
  Serious: Yes (Hospitalization)
  Sender: FDA-Public Use
  Company Number: JP-B.I. PHARMACEUTICALS,INC./RIDGEFIELD-2013-BI-04910NB

PATIENT
  Sex: 0

DRUGS (2)
  1. PRAZAXA [Suspect]
     Indication: ATRIAL FIBRILLATION
     Dosage: 150 MG
     Route: 048
  2. PRAZAXA [Suspect]
     Dosage: 150 MG

REACTIONS (5)
  - Malnutrition [Unknown]
  - Gastric fistula [Unknown]
  - Aphagia [Unknown]
  - Wrong technique in drug usage process [Unknown]
  - Off label use [Unknown]
